FAERS Safety Report 26151477 (Version 2)
Quarter: 2025Q4

REPORT INFORMATION
  Report Type: Spontaneous
  Country: GB (occurrence: GB)
  Receive Date: 20251212
  Receipt Date: 20251222
  Transmission Date: 20260117
  Serious: Yes (Other)
  Sender: PFIZER
  Company Number: GB-PFIZER INC-202500240712

PATIENT
  Sex: Male

DRUGS (4)
  1. TOFACITINIB CITRATE [Suspect]
     Active Substance: TOFACITINIB CITRATE
     Indication: Psoriatic arthropathy
     Dosage: UNK
  2. METHOTREXATE SODIUM [Suspect]
     Active Substance: METHOTREXATE SODIUM
     Indication: Psoriatic arthropathy
     Dosage: UNK
  3. APREMILAST [Concomitant]
     Active Substance: APREMILAST
     Indication: Psoriatic arthropathy
     Dosage: UNK
  4. TOCILIZUMAB [Concomitant]
     Active Substance: TOCILIZUMAB
     Indication: Psoriatic arthropathy
     Dosage: UNK

REACTIONS (2)
  - Uveitis [Unknown]
  - Infection [Unknown]
